FAERS Safety Report 16323556 (Version 1)
Quarter: 2019Q2

REPORT INFORMATION
  Report Type: Spontaneous
  Country: FR (occurrence: FR)
  Receive Date: 20190517
  Receipt Date: 20190517
  Transmission Date: 20190711
  Serious: Yes (Other)
  Sender: FDA-Public Use
  Company Number: FR-ROCHE-2318604

PATIENT
  Age: 33 Year
  Sex: Male

DRUGS (8)
  1. TAMIFLU [Suspect]
     Active Substance: OSELTAMIVIR PHOSPHATE
     Indication: INFLUENZA
     Route: 048
     Dates: start: 20190225, end: 20190303
  2. FENTANYL. [Concomitant]
     Active Substance: FENTANYL
     Indication: SEDATION
     Dosage: VARIABLE
     Route: 041
     Dates: start: 20190225, end: 20190311
  3. MIDAZOLAM [Concomitant]
     Active Substance: MIDAZOLAM HYDROCHLORIDE
     Indication: SEDATION
     Dosage: VARIABLE
     Route: 065
     Dates: start: 20190225, end: 20190311
  4. ROVAMYCINE [SPIRAMYCIN] [Suspect]
     Active Substance: SPIRAMYCIN
     Indication: LUNG DISORDER
     Dosage: INCONNUE
     Route: 042
     Dates: start: 20190227, end: 20190304
  5. ERYTHROMYCINE [ERYTHROMYCIN] [Suspect]
     Active Substance: ERYTHROMYCIN
     Indication: INFECTION
     Route: 042
     Dates: start: 20190302, end: 20190303
  6. LOVENOX [Suspect]
     Active Substance: ENOXAPARIN SODIUM
     Indication: THROMBOSIS PROPHYLAXIS
     Dosage: 4000 UI ANTI-XA/0.4 ML
     Route: 058
     Dates: start: 20190225, end: 20190304
  7. HEPARINE [HEPARIN] [Concomitant]
     Active Substance: HEPARIN SODIUM
     Dosage: VARIABLE
     Route: 042
     Dates: start: 20190303
  8. CEFOTAXIME [Suspect]
     Active Substance: CEFOTAXIME SODIUM
     Indication: LUNG DISORDER
     Dosage: VARIABLE
     Route: 042
     Dates: start: 20190225, end: 20190304

REACTIONS (1)
  - Hepatocellular injury [Recovered/Resolved]

NARRATIVE: CASE EVENT DATE: 20190304
